FAERS Safety Report 16198490 (Version 3)
Quarter: 2019Q2

REPORT INFORMATION
  Report Type: Spontaneous
  Country: US (occurrence: US)
  Receive Date: 20190415
  Receipt Date: 20190624
  Transmission Date: 20190711
  Serious: Yes (Other)
  Sender: FDA-Public Use
  Company Number: US-AMREGENT-20190673

PATIENT
  Age: 69 Year
  Sex: Male
  Weight: 61.24 kg

DRUGS (5)
  1. INJECTAFER [Suspect]
     Active Substance: FERRIC CARBOXYMALTOSE
     Dosage: 750 MG
     Route: 042
     Dates: start: 20190125, end: 20190201
  2. NAPROXEN. [Concomitant]
     Active Substance: NAPROXEN
     Dosage: 2 TABLETS TWICE A DAY 500 MG
     Route: 065
  3. NO DRUG NAME [Concomitant]
     Dosage: 15 DROPS DAILY WITH WATER
     Route: 048
  4. MULTIVITAMIN AND MINERAL [Concomitant]
     Dosage: 1 TAB DAILY
     Route: 065
  5. FERROUS SULFATE WITH VITAMIN C [Concomitant]
     Dosage: UNKNOWN
     Route: 065
     Dates: start: 20181005

REACTIONS (10)
  - Pain [Not Recovered/Not Resolved]
  - Bone pain [Unknown]
  - Chest pain [Not Recovered/Not Resolved]
  - Loss of personal independence in daily activities [Not Recovered/Not Resolved]
  - Pleurisy [None]
  - Spinal compression fracture [Unknown]
  - Dyspepsia [Unknown]
  - Back pain [Not Recovered/Not Resolved]
  - Spinal fracture [Unknown]
  - Osteoporosis [Not Recovered/Not Resolved]

NARRATIVE: CASE EVENT DATE: 2019
